FAERS Safety Report 25049444 (Version 3)
Quarter: 2025Q2

REPORT INFORMATION
  Report Type: Report from Study
  Country: US (occurrence: US)
  Receive Date: 20250307
  Receipt Date: 20250415
  Transmission Date: 20250716
  Serious: Yes (Hospitalization, Other)
  Sender: ALEXION PHARMACEUTICALS
  Company Number: US-AstraZeneca-CH-00817285A

PATIENT

DRUGS (1)
  1. ULTOMIRIS [Suspect]
     Active Substance: RAVULIZUMAB-CWVZ
     Route: 065

REACTIONS (8)
  - Headache [Unknown]
  - Back pain [Unknown]
  - Meningitis [Unknown]
  - Alopecia [Unknown]
  - Claustrophobia [Unknown]
  - Influenza [Unknown]
  - Fall [Unknown]
  - Skin discolouration [Unknown]
